FAERS Safety Report 8815749 (Version 10)
Quarter: 2013Q2

REPORT INFORMATION
  Report Type: Report from Study
  Country: US (occurrence: US)
  Receive Date: 20120928
  Receipt Date: 20130412
  Transmission Date: 20140414
  Serious: Yes (Life-Threatening, Hospitalization, Other)
  Sender: FDA-Public Use
  Company Number: US-ROCHE-1130581

PATIENT
  Age: 53 Year
  Sex: Female

DRUGS (12)
  1. PEGASYS [Suspect]
     Indication: CHRONIC HEPATITIS C
     Route: 058
     Dates: start: 20120731
  2. PEGASYS [Suspect]
     Route: 058
     Dates: start: 20120309
  3. KLONOPIN [Suspect]
     Indication: PRODUCT USED FOR UNKNOWN INDICATION
     Route: 065
  4. BOCEPREVIR [Suspect]
     Indication: CHRONIC HEPATITIS C
     Route: 065
     Dates: start: 20120903, end: 20130226
  5. BOCEPREVIR [Suspect]
     Route: 065
     Dates: start: 20120309
  6. BOCEPREVIR [Suspect]
     Route: 065
  7. RIBASPHERE [Suspect]
     Indication: CHRONIC HEPATITIS C
     Route: 065
     Dates: start: 20120731, end: 20130320
  8. RIBASPHERE [Suspect]
     Route: 065
     Dates: start: 20120309
  9. RIBASPHERE [Suspect]
     Route: 065
     Dates: start: 20121211
  10. RIBASPHERE [Suspect]
     Route: 048
     Dates: start: 20130306
  11. LEXAPRO [Concomitant]
     Route: 065
  12. CELEXA [Concomitant]
     Route: 065
     Dates: start: 20121206

REACTIONS (42)
  - Nephritis [Unknown]
  - Diverticulitis [Unknown]
  - Suicide attempt [Unknown]
  - Throat cancer [Unknown]
  - Nausea [Not Recovered/Not Resolved]
  - Headache [Not Recovered/Not Resolved]
  - Pyrexia [Unknown]
  - Blood urine present [Unknown]
  - Anaemia [Unknown]
  - Suicidal ideation [Unknown]
  - Weight decreased [Unknown]
  - Decreased appetite [Unknown]
  - Dizziness [Unknown]
  - Hallucination [Unknown]
  - Fall [Unknown]
  - Limb injury [Unknown]
  - Dysgeusia [Unknown]
  - Injection site haemorrhage [Unknown]
  - Dysphonia [Unknown]
  - Thrombosis [Unknown]
  - Diarrhoea [Unknown]
  - Injection site bruising [Unknown]
  - Dyspnoea [Unknown]
  - Alopecia [Unknown]
  - Hordeolum [Unknown]
  - Oral pain [Unknown]
  - Overdose [Unknown]
  - Laryngeal mass [Unknown]
  - Haemoglobin decreased [Unknown]
  - Haematocrit decreased [Unknown]
  - Pyrexia [Unknown]
  - Pain [Recovering/Resolving]
  - Local swelling [Unknown]
  - Dizziness [Unknown]
  - Swollen tongue [Unknown]
  - Productive cough [Unknown]
  - Leukoplakia oesophageal [Unknown]
  - Gastrooesophageal reflux disease [Unknown]
  - Pyrexia [Unknown]
  - Fatigue [Unknown]
  - Joint swelling [Unknown]
  - Local swelling [Unknown]
